FAERS Safety Report 23551134 (Version 1)
Quarter: 2024Q1

REPORT INFORMATION
  Report Type: Spontaneous
  Country: IN (occurrence: IN)
  Receive Date: 20240222
  Receipt Date: 20240222
  Transmission Date: 20240409
  Serious: Yes (Life-Threatening, Hospitalization, Other)
  Sender: FDA-Public Use
  Company Number: IN-DENTSPLY-2024SCDP000042

PATIENT
  Age: 46 Year
  Sex: Female

DRUGS (10)
  1. LIDOCAINE HYDROCHLORIDE AND EPINEPHRINE BITARTRATE [Interacting]
     Active Substance: EPINEPHRINE BITARTRATE\LIDOCAINE HYDROCHLORIDE
     Indication: Maintenance of anaesthesia
     Dosage: 5 MILLILITER (CUMULATIVE DOSE) 2% LIGNOCAINE AND 0.05 MG/ML ADRENALINE INJECTION (1 IN 200000 ADRENA
  2. DESFLURANE [Suspect]
     Active Substance: DESFLURANE
     Indication: Maintenance of anaesthesia
     Dosage: UNK DOSE (MINIMUM ALVEOLAR CONCENTRATION 1 TO 1.2)
  3. VECURONIUM [Concomitant]
     Active Substance: VECURONIUM BROMIDE
     Indication: Induction of anaesthesia
     Dosage: 8 MILLIGRAM
  4. DEXAMETHASONE [Concomitant]
     Active Substance: DEXAMETHASONE
     Indication: Product used for unknown indication
     Dosage: 16 MILLIGRAM
     Route: 042
  5. FENTANYL [Concomitant]
     Active Substance: FENTANYL\FENTANYL CITRATE
     Indication: Induction of anaesthesia
     Dosage: 140 MICROGRAM
     Route: 042
  6. NITROUS OXIDE [Concomitant]
     Active Substance: NITROUS OXIDE
     Indication: Product used for unknown indication
     Dosage: UNK
  7. XYLOMETAZOLINE HYDROCHLORIDE [Concomitant]
     Active Substance: XYLOMETAZOLINE HYDROCHLORIDE
     Indication: Product used for unknown indication
     Dosage: UNK DOSE OF XYLOMETAZOLIN NASAL DROPS
     Route: 045
  8. SODIUM CHLORIDE [Concomitant]
     Active Substance: SODIUM CHLORIDE
     Indication: Product used for unknown indication
     Dosage: UNK DOSE OF 0.9% SODIUM CHLORIDE
  9. THIOPENTAL [Concomitant]
     Active Substance: THIOPENTAL
     Indication: Induction of anaesthesia
     Dosage: 250 MILLIGRAM
  10. OXYGEN [Concomitant]
     Active Substance: OXYGEN
     Indication: Product used for unknown indication
     Dosage: UNK

REACTIONS (5)
  - Ventricular tachycardia [Recovered/Resolved]
  - Drug interaction [Recovered/Resolved]
  - Hypertension [None]
  - Blood pressure immeasurable [Recovered/Resolved]
  - Electrocardiogram QT prolonged [Recovered/Resolved]
